FAERS Safety Report 9026582 (Version 2)
Quarter: 2013Q3

REPORT INFORMATION
  Report Type: Report from Study
  Country: MX (occurrence: MX)
  Receive Date: 20130123
  Receipt Date: 20130819
  Transmission Date: 20140515
  Serious: Yes (Other)
  Sender: FDA-Public Use
  Company Number: PHHY2013MX005550

PATIENT
  Age: 62 Year
  Sex: Female

DRUGS (3)
  1. DIOVAN [Suspect]
     Indication: HYPERTENSION
     Dosage: 160 MG, UNK
  2. DIOVAN [Suspect]
     Dosage: 0.5 DF, DAILY (80 MG)
     Route: 048
     Dates: start: 201305
  3. NOVOTIRAL [Concomitant]
     Indication: AUTOIMMUNE THYROIDITIS
     Dosage: 1.5 DF, DAILY
     Dates: start: 1975

REACTIONS (3)
  - Weight decreased [Not Recovered/Not Resolved]
  - Blood pressure decreased [Not Recovered/Not Resolved]
  - Wrong technique in drug usage process [Unknown]
